FAERS Safety Report 7097472-3 (Version None)
Quarter: 2010Q4

REPORT INFORMATION
  Report Type: 
  Country: None (occurrence: None)
  Receive Date: 20101111
  Receipt Date: 20071017
  Transmission Date: 20110411
  Serious: Yes (Life-Threatening, Hospitalization)
  Sender: FDA-Public Use
  Company Number: PHBS2007ES17226

PATIENT
  Age: 79 Year
  Sex: Female

DRUGS (7)
  1. EXELON [Suspect]
     Indication: DEMENTIA
     Dosage: 2 MG/ML, UNK
     Route: 048
     Dates: start: 20070330, end: 20070630
  2. ATENOLOL [Interacting]
     Indication: ISCHAEMIC CARDIOMYOPATHY
     Dosage: UNK, UNK
     Dates: start: 20050101, end: 20070630
  3. DILTIAZEM HCL [Interacting]
     Indication: ISCHAEMIC CARDIOMYOPATHY
     Dosage: 60 MG, UNK
     Route: 065
     Dates: start: 20050101, end: 20070630
  4. PREDNISONE [Concomitant]
     Indication: EYE DISORDER
     Route: 065
     Dates: start: 20050101
  5. ACETYLSALICYLIC ACID [Concomitant]
     Indication: ISCHAEMIC CARDIOMYOPATHY
     Route: 048
     Dates: start: 20050101
  6. ATORVASTATIN [Concomitant]
     Indication: DYSLIPIDAEMIA
     Route: 065
     Dates: start: 20050101
  7. NITRO-DUR [Concomitant]
     Indication: ISCHAEMIC CARDIOMYOPATHY
     Dosage: 120 MG PATCHES
     Route: 062
     Dates: start: 20050101

REACTIONS (4)
  - BRADYCARDIA [None]
  - DRUG INTERACTION [None]
  - SINUS ARREST [None]
  - SYNCOPE [None]
